FAERS Safety Report 4289281-5 (Version None)
Quarter: 2004Q1

REPORT INFORMATION
  Report Type: 
  Country: None (occurrence: None)
  Receive Date: 20040210
  Receipt Date: 20030717
  Transmission Date: 20041129
  Serious: Yes (Other)
  Sender: FDA-Public Use
  Company Number: ZA-BRISTOL-MYERS SQUIBB COMPANY-12328738

PATIENT
  Age: 33 Year
  Sex: Female

DRUGS (3)
  1. STAVUDINE [Suspect]
     Indication: HIV INFECTION
     Dosage: INTERRUPTED ON 20-DEC-1999 AND RESTARTED ON 08-JAN-2000
     Route: 048
     Dates: start: 19990926
  2. EMTRICITABINE [Suspect]
     Indication: HIV INFECTION
     Dosage: INTERRUPTED ON 20-DEC-1999 AND RESTARTED ON 08-JAN-2000
     Route: 048
     Dates: start: 19990926
  3. EMIVIRINE [Suspect]
     Indication: HIV INFECTION
     Dosage: INTERRUPTED ON 19-DEC-1999 AND RESTARTED ON 08-JAN-2000
     Route: 048
     Dates: start: 19990926

REACTIONS (4)
  - ABORTION SPONTANEOUS [None]
  - COMPLICATIONS OF MATERNAL EXPOSURE TO THERAPEUTIC DRUGS [None]
  - MATERNAL DRUGS AFFECTING FOETUS [None]
  - PREGNANCY [None]
